FAERS Safety Report 9454175 (Version 1)
Quarter: 2013Q3

REPORT INFORMATION
  Report Type: Spontaneous
  Country: US (occurrence: None)
  Receive Date: 20130809
  Receipt Date: 20130809
  Transmission Date: 20140515
  Serious: No
  Sender: FDA-Public Use
  Company Number: None

PATIENT
  Age: 27 Year
  Sex: Female
  Weight: 54 kg

DRUGS (1)
  1. VANCOMYCIN [Suspect]
     Indication: LYME DISEASE
     Route: 042
     Dates: start: 20130521, end: 20130628

REACTIONS (3)
  - Ear pain [None]
  - Dizziness [None]
  - Ear discomfort [None]
